FAERS Safety Report 14029399 (Version 1)
Quarter: 2017Q4

REPORT INFORMATION
  Report Type: Spontaneous
  Country: US (occurrence: US)
  Receive Date: 20171002
  Receipt Date: 20171002
  Transmission Date: 20180321
  Serious: No
  Sender: FDA-Public Use
  Company Number: US-JAZZ-2017-US-011252

PATIENT
  Sex: Female

DRUGS (35)
  1. LOSARTAN + HIDROCLOROTIAZIDA       /01284801/ [Concomitant]
     Active Substance: HYDROCHLOROTHIAZIDE\LOSARTAN POTASSIUM
  2. CALCIUM CARBONATE. [Concomitant]
     Active Substance: CALCIUM CARBONATE
  3. XYREM [Suspect]
     Active Substance: SODIUM OXYBATE
     Dosage: 6 G, QD, FIRST DOSE
     Route: 048
     Dates: start: 201206
  4. ABILIFY [Concomitant]
     Active Substance: ARIPIPRAZOLE
  5. ADDERALL [Concomitant]
     Active Substance: AMPHETAMINE ASPARTATE\AMPHETAMINE SULFATE\DEXTROAMPHETAMINE SACCHARATE\DEXTROAMPHETAMINE SULFATE
  6. FORTEO [Concomitant]
     Active Substance: TERIPARATIDE
  7. CRESTOR [Concomitant]
     Active Substance: ROSUVASTATIN CALCIUM
  8. LEXAPRO [Concomitant]
     Active Substance: ESCITALOPRAM OXALATE
  9. LIPITOR [Concomitant]
     Active Substance: ATORVASTATIN CALCIUM
  10. MORPHINE SULFATE. [Concomitant]
     Active Substance: MORPHINE SULFATE
  11. XYREM [Suspect]
     Active Substance: SODIUM OXYBATE
     Dosage: 4 G, QD, SECOND DOSE
     Route: 048
     Dates: start: 200712, end: 201206
  12. TRULICITY [Concomitant]
     Active Substance: DULAGLUTIDE
  13. BYETTA [Concomitant]
     Active Substance: EXENATIDE
  14. CYTOMEL [Concomitant]
     Active Substance: LIOTHYRONINE SODIUM
  15. METHOTREXATE (METHOTREXATE SODIUM) [Concomitant]
     Active Substance: METHOTREXATE SODIUM
  16. XYREM [Suspect]
     Active Substance: SODIUM OXYBATE
     Indication: CATAPLEXY
     Dosage: 6 G, QD, FIRST DOSE
     Route: 048
     Dates: start: 200712, end: 201206
  17. XYREM [Suspect]
     Active Substance: SODIUM OXYBATE
     Dosage: 5 G, QD, SECOND DOSE
     Route: 048
     Dates: start: 201206
  18. FENOFIBRATE. [Concomitant]
     Active Substance: FENOFIBRATE
  19. NUCYNTA [Concomitant]
     Active Substance: TAPENTADOL HYDROCHLORIDE
  20. FENTANYL. [Concomitant]
     Active Substance: FENTANYL
  21. ACTOS [Concomitant]
     Active Substance: PIOGLITAZONE HYDROCHLORIDE
  22. REMICADE [Concomitant]
     Active Substance: INFLIXIMAB
  23. LIDODERM [Concomitant]
     Active Substance: LIDOCAINE
  24. ZETIA [Concomitant]
     Active Substance: EZETIMIBE
  25. VICTOZA [Concomitant]
     Active Substance: LIRAGLUTIDE
  26. AMBIEN CR [Concomitant]
     Active Substance: ZOLPIDEM TARTRATE
  27. RELPAX [Concomitant]
     Active Substance: ELETRIPTAN HYDROBROMIDE
  28. SYNTHROID [Concomitant]
     Active Substance: LEVOTHYROXINE SODIUM
  29. ZANAFLEX [Concomitant]
     Active Substance: TIZANIDINE HYDROCHLORIDE
  30. XYREM [Suspect]
     Active Substance: SODIUM OXYBATE
     Indication: NARCOLEPSY
     Dosage: 4G, BID
     Route: 048
     Dates: start: 200706, end: 200712
  31. AMARYL [Concomitant]
     Active Substance: GLIMEPIRIDE
  32. PROVIGIL [Concomitant]
     Active Substance: MODAFINIL
  33. TRICOR                             /00090101/ [Concomitant]
     Active Substance: ADENOSINE
  34. VITAMIN D                          /00107901/ [Concomitant]
     Active Substance: ERGOCALCIFEROL
  35. ZOFRAN [Concomitant]
     Active Substance: ONDANSETRON HYDROCHLORIDE

REACTIONS (1)
  - Blood pressure abnormal [Unknown]
